FAERS Safety Report 23712791 (Version 1)
Quarter: 2024Q2

REPORT INFORMATION
  Report Type: Spontaneous
  Country: CN (occurrence: None)
  Receive Date: 20240405
  Receipt Date: 20240405
  Transmission Date: 20240716
  Serious: Yes (Other)
  Sender: FDA-Public Use
  Company Number: 2024A080108

PATIENT
  Age: 38 Year
  Sex: Female
  Weight: 52 kg

DRUGS (1)
  1. ESOMEPRAZOLE [Suspect]
     Active Substance: ESOMEPRAZOLE
     Indication: Helicobacter infection
     Route: 048
     Dates: start: 20240311, end: 20240312

REACTIONS (2)
  - Vertigo [Recovering/Resolving]
  - Discomfort [Unknown]

NARRATIVE: CASE EVENT DATE: 20240312
